FAERS Safety Report 21425706 (Version 3)
Quarter: 2022Q4

REPORT INFORMATION
  Report Type: Report from Study
  Country: CO (occurrence: CO)
  Receive Date: 20221008
  Receipt Date: 20221025
  Transmission Date: 20230113
  Serious: Yes (Other)
  Sender: FDA-Public Use
  Company Number: CO-ABBVIE-4146047

PATIENT
  Age: 55 Year
  Sex: Female
  Weight: 60 kg

DRUGS (5)
  1. HUMIRA [Suspect]
     Active Substance: ADALIMUMAB
     Indication: Rheumatoid arthritis
     Route: 058
     Dates: start: 20210320, end: 20220906
  2. NAPROXEN [Concomitant]
     Active Substance: NAPROXEN
     Indication: Pain management
     Route: 048
  3. UNIPLEN [Concomitant]
     Indication: Inflammation
     Route: 048
  4. CYANOCOBALAMIN\FOLIC ACID\PYRIDOXINE HYDROCHLORIDE [Concomitant]
     Active Substance: CYANOCOBALAMIN\FOLIC ACID\PYRIDOXINE HYDROCHLORIDE
     Indication: Rheumatoid arthritis
     Route: 048
  5. METHOTREXATE [Concomitant]
     Active Substance: METHOTREXATE
     Indication: Rheumatoid arthritis
     Dates: start: 2014

REACTIONS (4)
  - Intestinal obstruction [Recovering/Resolving]
  - Discomfort [Recovering/Resolving]
  - Constipation [Recovering/Resolving]
  - Infrequent bowel movements [Recovering/Resolving]

NARRATIVE: CASE EVENT DATE: 20221001
